FAERS Safety Report 8757938 (Version 1)
Quarter: 2012Q4

REPORT INFORMATION
  Report Type: 
  Country: JP (occurrence: JP)
  Receive Date: 20120828
  Receipt Date: 20120828
  Transmission Date: 20130627
  Serious: Yes (Other)
  Sender: FDA-Public Use
  Company Number: JP-ASTELLAS-2012JP007891

PATIENT
  Age: 13 Month
  Sex: Male

DRUGS (7)
  1. PROGRAF [Suspect]
     Indication: IMMUNOSUPPRESSANT DRUG THERAPY
     Dosage: 0.15 mg, Unknown/D
     Route: 048
  2. PREDONINE /00016201/ [Concomitant]
     Indication: IMMUNOSUPPRESSANT DRUG THERAPY
     Dosage: UNK mg, Unknown/D
     Route: 048
  3. METHOTREXATE [Concomitant]
     Indication: IMMUNOSUPPRESSANT DRUG THERAPY
     Dosage: 5 mg, Weekly
     Route: 048
  4. VORICONAZOLE [Concomitant]
     Indication: ANTIFUNGAL TREATMENT
     Dosage: 50 mg, Unknown/D
     Route: 048
  5. SULFAMETHOXAZOLE [Concomitant]
     Indication: INFECTION PROPHYLAXIS
     Dosage: 0.4 mg, 3xWeekly
     Route: 048
  6. AMOXICILLIN [Concomitant]
     Indication: INFECTION PROPHYLAXIS
     Dosage: 120 mg, Unknown/D
     Route: 048
  7. ALFACALCIDOL [Concomitant]
     Indication: VITAMIN SUPPLEMENTATION
     Dosage: 0.3 mg, Unknown/D
     Route: 048

REACTIONS (3)
  - Drug ineffective [Unknown]
  - Graft versus host disease [Unknown]
  - Chronic graft versus host disease [Unknown]
